FAERS Safety Report 23250896 (Version 4)
Quarter: 2024Q4

REPORT INFORMATION
  Report Type: Other
  Country: CA (occurrence: CA)
  Receive Date: 20231201
  Receipt Date: 20241004
  Transmission Date: 20250115
  Serious: Yes (Death, Hospitalization, Other)
  Sender: APOTEX
  Company Number: CA-APOTEX-2023AP017055

PATIENT
  Age: 72 Year
  Sex: Female

DRUGS (8)
  1. MOXIFLOXACIN [Suspect]
     Active Substance: MOXIFLOXACIN
     Indication: Post procedural infection
     Dosage: 400 MILLIGRAM, QD
     Route: 065
  2. MOXIFLOXACIN [Suspect]
     Active Substance: MOXIFLOXACIN
     Indication: Arthritis infective
     Dosage: 400 MILLIGRAM, QD
     Route: 065
  3. MOXIFLOXACIN [Suspect]
     Active Substance: MOXIFLOXACIN
     Dosage: UNK
     Route: 065
  4. CODEINE PHOSPHATE [Suspect]
     Active Substance: CODEINE PHOSPHATE
     Indication: Product used for unknown indication
     Dosage: UNK
     Route: 065
  5. SANDOSTATIN [Suspect]
     Active Substance: OCTREOTIDE ACETATE
     Indication: Carcinoid tumour
     Dosage: 30 MILLIGRAM, Q.M.T.
     Route: 030
  6. AMOXICILLIN\CLAVULANATE POTASSIUM [Concomitant]
     Active Substance: AMOXICILLIN\CLAVULANATE POTASSIUM
     Indication: Post procedural infection
     Dosage: UNK, QD
     Route: 065
  7. AMOXICILLIN\CLAVULANATE POTASSIUM [Concomitant]
     Active Substance: AMOXICILLIN\CLAVULANATE POTASSIUM
     Indication: Arthritis infective
     Dosage: UNK, BID
     Route: 065
  8. AMOXICILLIN\CLAVULANATE POTASSIUM [Concomitant]
     Active Substance: AMOXICILLIN\CLAVULANATE POTASSIUM
     Dosage: UNK
     Route: 065

REACTIONS (33)
  - Death [Fatal]
  - Abnormal faeces [Recovered/Resolved]
  - Blood glucose abnormal [Recovered/Resolved]
  - Carcinoid tumour [Recovered/Resolved]
  - Cataract [Recovered/Resolved]
  - Cholelithiasis [Recovered/Resolved]
  - Flushing [Recovered/Resolved]
  - Glaucoma [Recovered/Resolved]
  - Incision site haematoma [Recovered/Resolved]
  - Infrequent bowel movements [Recovered/Resolved]
  - Lung neoplasm [Recovered/Resolved]
  - Malignant neoplasm progression [Recovered/Resolved]
  - Metastases to neck [Recovered/Resolved]
  - Metastases to thyroid [Recovered/Resolved]
  - Parotitis [Recovered/Resolved]
  - Scar [Recovered/Resolved]
  - Thrombosis [Recovered/Resolved]
  - Tooth abscess [Recovered/Resolved]
  - Neoplasm malignant [Recovered/Resolved]
  - Tumour rupture [Recovered/Resolved]
  - Wrong technique in product usage process [Recovered/Resolved]
  - Chest pain [Recovered/Resolved]
  - Depressed mood [Recovered/Resolved]
  - Abdominal pain [Recovered/Resolved]
  - Nausea [Recovered/Resolved]
  - Urine abnormality [Recovered/Resolved]
  - Infection [Recovered/Resolved]
  - Malaise [Recovered/Resolved]
  - Hypotension [Recovered/Resolved]
  - Diarrhoea [Recovered/Resolved]
  - Cystitis [Recovered/Resolved]
  - Anxiety [Recovered/Resolved]
  - Drug ineffective [Recovered/Resolved]
